FAERS Safety Report 9037824 (Version 1)
Quarter: 2013Q1

REPORT INFORMATION
  Report Type: Report from Study
  Country: US (occurrence: US)
  Receive Date: 20130129
  Receipt Date: 20130129
  Transmission Date: 20140127
  Serious: No
  Sender: FDA-Public Use
  Company Number: US-ABBOTT-12P-163-0891742-00

PATIENT
  Sex: Female
  Weight: 59.02 kg

DRUGS (8)
  1. HUMIRA 40 MG/0.8 ML PEN [Suspect]
     Indication: RHEUMATOID ARTHRITIS
     Dates: start: 201111, end: 201111
  2. HUMIRA 40 MG/0.8 ML PEN [Suspect]
     Dates: start: 20111228
  3. METHOTREXATE [Concomitant]
     Indication: RHEUMATOID ARTHRITIS
  4. FOLIC ACID [Concomitant]
     Indication: RHEUMATOID ARTHRITIS
  5. CALCIUM [Concomitant]
     Indication: MINERAL SUPPLEMENTATION
     Dosage: DAILY
  6. UNKNOWN BLOOD PRESSURE MEDICINE [Concomitant]
     Indication: HYPERTENSION
  7. CENTRUM [Concomitant]
     Indication: VITAMIN SUPPLEMENTATION
  8. SUSTANE [Concomitant]
     Indication: DRY EYE

REACTIONS (4)
  - Injection site haemorrhage [Recovered/Resolved]
  - Injection site pain [Recovered/Resolved]
  - Wrong technique in drug usage process [Unknown]
  - Injection site haemorrhage [Unknown]
